FAERS Safety Report 9131480 (Version 2)
Quarter: 2015Q2

REPORT INFORMATION
  Report Type: Spontaneous
  Country: US (occurrence: US)
  Receive Date: 20130301
  Receipt Date: 20150410
  Transmission Date: 20150821
  Serious: No
  Sender: FDA-Public Use
  Company Number: US-PFIZER INC-2013071126

PATIENT
  Age: 58 Year
  Sex: Female

DRUGS (3)
  1. OXYCODONE HYDROCHLORIDE. [Suspect]
     Active Substance: OXYCODONE HYDROCHLORIDE
     Dosage: UNK
  2. IODINE [Suspect]
     Active Substance: IODINE
     Dosage: UNK
  3. CODEINE [Suspect]
     Active Substance: CODEINE
     Dosage: UNK

REACTIONS (1)
  - Drug hypersensitivity [Unknown]
